FAERS Safety Report 10957161 (Version 2)
Quarter: 2015Q1

REPORT INFORMATION
  Report Type: Spontaneous
  Country: US (occurrence: US)
  Receive Date: 20150326
  Receipt Date: 20150326
  Transmission Date: 20150721
  Serious: No
  Sender: FDA-Public Use
  Company Number: US-009507513-1503USA005958

PATIENT
  Age: 70 Year
  Sex: Female

DRUGS (2)
  1. ZOLOFT [Concomitant]
     Active Substance: SERTRALINE HYDROCHLORIDE
     Dosage: UNK
  2. VYTORIN [Suspect]
     Active Substance: EZETIMIBE\SIMVASTATIN
     Indication: BLOOD CHOLESTEROL
     Dosage: 10/40 MG ONCE A DAY
     Route: 048
     Dates: start: 20150224, end: 20150308

REACTIONS (4)
  - Burning sensation [Recovering/Resolving]
  - Eructation [Recovering/Resolving]
  - Gastrooesophageal reflux disease [Recovering/Resolving]
  - Constipation [Recovering/Resolving]

NARRATIVE: CASE EVENT DATE: 20150302
